FAERS Safety Report 15835820 (Version 2)
Quarter: 2019Q1

REPORT INFORMATION
  Report Type: Report from Study
  Country: US (occurrence: US)
  Receive Date: 20190117
  Receipt Date: 20190117
  Transmission Date: 20190417
  Serious: Yes (Hospitalization)
  Sender: FDA-Public Use
  Company Number: US-TEVA-2019-US-999494

PATIENT
  Age: 46 Year
  Sex: Female
  Weight: 108.2 kg

DRUGS (1)
  1. CINQAIR [Suspect]
     Active Substance: RESLIZUMAB
     Indication: EOSINOPHILIC GRANULOMATOSIS WITH POLYANGIITIS
     Dosage: LAST ADMINISTRATION BEFORE THE ADVERSE EVENTS: 19-NOV-2018.
     Route: 042
     Dates: start: 20180927

REACTIONS (8)
  - Migraine [Recovered/Resolved]
  - Muscle twitching [Recovering/Resolving]
  - Neuralgia [Recovered/Resolved]
  - Headache [Recovered/Resolved]
  - Dizziness [Recovered/Resolved]
  - Vision blurred [Recovered/Resolved]
  - Photophobia [Recovered/Resolved]
  - Tremor [Recovering/Resolving]

NARRATIVE: CASE EVENT DATE: 20181119
